FAERS Safety Report 10018096 (Version 2)
Quarter: 2014Q1

REPORT INFORMATION
  Report Type: Spontaneous
  Country: US (occurrence: US)
  Receive Date: 20140318
  Receipt Date: 20140318
  Transmission Date: 20141002
  Serious: Yes (Other)
  Sender: FDA-Public Use
  Company Number: US-BRISTOL-MYERS SQUIBB COMPANY-18951178

PATIENT
  Age: 56 Year
  Sex: Male

DRUGS (4)
  1. ERBITUX [Suspect]
     Indication: PHARYNGEAL CANCER
     Route: 042
     Dates: start: 20130312
  2. BENADRYL [Concomitant]
  3. DECADRON [Concomitant]
  4. KYTRIL [Concomitant]

REACTIONS (5)
  - Dyspnoea [Unknown]
  - Chest pain [Unknown]
  - Hypotension [Unknown]
  - Hyperhidrosis [Unknown]
  - Pallor [Unknown]
